FAERS Safety Report 7369952-4 (Version None)
Quarter: 2011Q1

REPORT INFORMATION
  Report Type: 
  Country: None (occurrence: None)
  Receive Date: 20110323
  Receipt Date: 20110317
  Transmission Date: 20110831
  Serious: Yes (Death, Other)
  Sender: FDA-Public Use
  Company Number: ES-BAXTER-2011BH007091

PATIENT

DRUGS (4)
  1. COTRIM [Suspect]
     Indication: PROPHYLAXIS
     Route: 048
  2. CYCLOPHOSPHAMIDE [Suspect]
     Indication: B-CELL LYMPHOMA
     Route: 042
  3. FLUDARABINE [Suspect]
     Indication: B-CELL LYMPHOMA
     Route: 042
  4. RITUXIMAB [Suspect]
     Indication: B-CELL LYMPHOMA
     Route: 042

REACTIONS (2)
  - RESPIRATORY TRACT INFECTION [None]
  - OBLITERATIVE BRONCHIOLITIS [None]
